FAERS Safety Report 20031693 (Version 1)
Quarter: 2021Q4

REPORT INFORMATION
  Report Type: Spontaneous
  Country: US (occurrence: US)
  Receive Date: 20211103
  Receipt Date: 20211103
  Transmission Date: 20220303
  Serious: Yes (Hospitalization, Other)
  Sender: FDA-Public Use
  Company Number: US-ABBVIE-21K-163-4133102-00

PATIENT
  Age: 74 Year
  Sex: Male
  Weight: 71.278 kg

DRUGS (1)
  1. IMBRUVICA [Suspect]
     Active Substance: IBRUTINIB
     Indication: Product used for unknown indication
     Route: 048

REACTIONS (7)
  - Haemoglobin decreased [Recovering/Resolving]
  - Blindness [Recovering/Resolving]
  - Hiatus hernia [Unknown]
  - Dysarthria [Recovering/Resolving]
  - Dysstasia [Recovering/Resolving]
  - Dizziness [Unknown]
  - Vision blurred [Unknown]

NARRATIVE: CASE EVENT DATE: 20210915
